FAERS Safety Report 10470392 (Version 1)
Quarter: 2014Q3

REPORT INFORMATION
  Report Type: Spontaneous
  Country: US (occurrence: US)
  Receive Date: 20140923
  Receipt Date: 20140923
  Transmission Date: 20150326
  Serious: Yes (Other)
  Sender: FDA-Public Use
  Company Number: US-BAYER-2014-139241

PATIENT
  Sex: Female
  Weight: 75.96 kg

DRUGS (1)
  1. BAYER GENUINE ASPIRIN [Suspect]
     Active Substance: ASPIRIN
     Indication: HEADACHE
     Dosage: 2 DF, ONCE
     Route: 048

REACTIONS (2)
  - Shock [Recovered/Resolved]
  - Drug hypersensitivity [Not Recovered/Not Resolved]
